FAERS Safety Report 7775104-6 (Version None)
Quarter: 2011Q3

REPORT INFORMATION
  Report Type: 
  Country: None (occurrence: None)
  Receive Date: 20110923
  Receipt Date: 20110913
  Transmission Date: 20111222
  Serious: Yes (Hospitalization)
  Sender: FDA-Public Use
  Company Number: JP-JNJFOC-20110905848

PATIENT
  Age: 70 Year
  Sex: Female

DRUGS (4)
  1. REMICADE [Suspect]
     Indication: RHEUMATOID ARTHRITIS
     Route: 042
  2. PREDNISOLONE [Suspect]
     Indication: RHEUMATOID ARTHRITIS
     Dates: start: 20050301
  3. METHOTREXATE [Suspect]
     Indication: RHEUMATOID ARTHRITIS
  4. REMICADE [Suspect]
     Route: 042
     Dates: start: 20050501

REACTIONS (2)
  - PLEURAL INFECTION BACTERIAL [None]
  - PNEUMOTHORAX [None]
